FAERS Safety Report 7404172-6 (Version None)
Quarter: 2011Q1

REPORT INFORMATION
  Report Type: 
  Country: None (occurrence: None)
  Receive Date: 20110331
  Receipt Date: 20110321
  Transmission Date: 20110831
  Serious: Yes (Life-Threatening)
  Sender: FDA-Public Use
  Company Number: WAES 1103USA03135

PATIENT
  Sex: Male

DRUGS (9)
  1. SULFAMETHOXAZOLE AND TRIMETHOPRIM [Suspect]
     Indication: HIV INFECTION
     Dates: start: 20040601
  2. AMPRENAVIR UNK [Suspect]
     Indication: HIV INFECTION
     Dates: start: 20110307
  3. STAVUDINE [Suspect]
     Indication: HIV INFECTION
     Dates: start: 20040601, end: 20110317
  4. LAMIVUDINE [Suspect]
     Indication: HIV INFECTION
     Dates: start: 20040601, end: 20110317
  5. NEVIRAPINE [Suspect]
     Indication: HIV INFECTION
     Dates: start: 20040601, end: 20110317
  6. LOPINAVIR AND RITONAVIR [Suspect]
     Indication: HIV INFECTION
     Dates: start: 20110307
  7. CLARITHROMYCIN [Suspect]
     Indication: HIV INFECTION
     Dates: start: 20110307, end: 20110321
  8. TAB RALTEGRAVIR POTASSIUM UNK [Suspect]
     Indication: HIV INFECTION
     Dosage: PO
     Route: 048
     Dates: start: 20110307
  9. KALETRA [Suspect]
     Indication: HIV INFECTION
     Dates: start: 20110317, end: 20110318

REACTIONS (1)
  - TUBERCULOSIS [None]
